FAERS Safety Report 20051632 (Version 3)
Quarter: 2022Q1

REPORT INFORMATION
  Report Type: Spontaneous
  Country: PH (occurrence: None)
  Receive Date: 20211110
  Receipt Date: 20220225
  Transmission Date: 20220423
  Serious: Yes (Death)
  Sender: FDA-Public Use
  Company Number: PH-ROCHE-2952453

PATIENT
  Sex: Male
  Weight: 56 kg

DRUGS (1)
  1. ACTEMRA [Suspect]
     Active Substance: TOCILIZUMAB
     Indication: COVID-19
     Route: 042
     Dates: start: 20210612, end: 20210612

REACTIONS (2)
  - COVID-19 pneumonia [Fatal]
  - Off label use [Unknown]
